FAERS Safety Report 4536219-9 (Version None)
Quarter: 2004Q4

REPORT INFORMATION
  Report Type: 
  Country: None (occurrence: None)
  Receive Date: 20041220
  Receipt Date: 20041209
  Transmission Date: 20050328
  Serious: Yes (Hospitalization)
  Sender: FDA-Public Use
  Company Number: MEDI-0002522

PATIENT
  Age: 61 Year
  Sex: Male
  Weight: 75.7507 kg

DRUGS (4)
  1. ETHYOL [Suspect]
     Indication: RADIOTHERAPY
  2. TAXOL [Concomitant]
  3. CARBOPLATIN [Concomitant]
  4. RADIATION THERAPY [Concomitant]

REACTIONS (16)
  - BACTERAEMIA [None]
  - BLOOD CULTURE POSITIVE [None]
  - CANDIDIASIS [None]
  - CHRONIC OBSTRUCTIVE AIRWAYS DISEASE [None]
  - COMPUTERISED TOMOGRAM ABNORMAL [None]
  - CULTURE STOOL POSITIVE [None]
  - DYSPNOEA [None]
  - HAEMATOCRIT DECREASED [None]
  - HAEMOGLOBIN DECREASED [None]
  - HYPOTENSION [None]
  - NEUTROPHIL COUNT DECREASED [None]
  - PSEUDOMONAS INFECTION [None]
  - RED BLOOD CELL COUNT DECREASED [None]
  - SEPSIS [None]
  - SPUTUM CULTURE POSITIVE [None]
  - WHITE BLOOD CELL COUNT DECREASED [None]
